FAERS Safety Report 23432780 (Version 1)
Quarter: 2024Q1

REPORT INFORMATION
  Report Type: Spontaneous
  Country: None (occurrence: CA)
  Receive Date: 20240123
  Receipt Date: 20240123
  Transmission Date: 20240410
  Serious: Yes (Death)
  Sender: FDA-Public Use
  Company Number: CA-Pharmascience Inc.-2151862

PATIENT
  Age: 71 Year
  Sex: Female
  Weight: 84 kg

DRUGS (13)
  1. BORTEZOMIB [Suspect]
     Active Substance: BORTEZOMIB
     Indication: Plasma cell myeloma
     Route: 058
  2. DARZALEX [Suspect]
     Active Substance: DARATUMUMAB
     Route: 058
  3. ACETAMINOPHEN [Concomitant]
     Active Substance: ACETAMINOPHEN
  4. OLANZAPINE [Concomitant]
     Active Substance: OLANZAPINE
  5. MONTELUKAST SODIUM [Concomitant]
     Active Substance: MONTELUKAST SODIUM
  6. DIPHENHYDRAMINE HYDROCHLORIDE [Concomitant]
     Active Substance: DIPHENHYDRAMINE HYDROCHLORIDE
  7. DEXAMETHASONE SODIUM PHOSPHATE [Concomitant]
     Active Substance: DEXAMETHASONE PHOSPHATE\DEXAMETHASONE SODIUM PHOSPHATE
  8. CETIRIZINE HYDROCHLORIDE [Concomitant]
     Active Substance: CETIRIZINE HYDROCHLORIDE
  9. ASPIRIN [Concomitant]
     Active Substance: ASPIRIN
  10. ACYCLOVIR [Concomitant]
     Active Substance: ACYCLOVIR
  11. ALLOPURINOL [Concomitant]
     Active Substance: ALLOPURINOL
  12. CYCLOPHOSPHAMIDE [Concomitant]
     Active Substance: CYCLOPHOSPHAMIDE
  13. FAMOTIDINE [Concomitant]
     Active Substance: FAMOTIDINE

REACTIONS (4)
  - Circulatory collapse [Fatal]
  - Tremor [Fatal]
  - Sinus tachycardia [Fatal]
  - Blood potassium increased [Fatal]
